FAERS Safety Report 7230303-7 (Version None)
Quarter: 2011Q1

REPORT INFORMATION
  Report Type: 
  Country: None (occurrence: None)
  Receive Date: 20110118
  Receipt Date: 20110112
  Transmission Date: 20110831
  Serious: No
  Sender: FDA-Public Use
  Company Number: US-PFIZER INC-2005092571

PATIENT
  Sex: Female
  Weight: 54.43 kg

DRUGS (2)
  1. AVELOX [Interacting]
     Indication: SINUSITIS
     Route: 048
     Dates: start: 20050401, end: 20050401
  2. NARDIL [Suspect]
     Dosage: 15 MG, 2X/DAY
     Route: 048

REACTIONS (6)
  - MIDDLE INSOMNIA [None]
  - INSOMNIA [None]
  - DRUG INTERACTION [None]
  - SEASONAL ALLERGY [None]
  - SINUSITIS [None]
  - PANIC ATTACK [None]
